FAERS Safety Report 9682974 (Version 1)
Quarter: 2013Q4

REPORT INFORMATION
  Report Type: Spontaneous
  Country: US (occurrence: None)
  Receive Date: 20131111
  Receipt Date: 20131111
  Transmission Date: 20140711
  Serious: No
  Sender: FDA-Public Use
  Company Number: None

PATIENT
  Age: 63 Year
  Sex: Male

DRUGS (2)
  1. AMOXICILLIN [Suspect]
     Indication: SINUSITIS
     Dates: start: 20131007, end: 20131007
  2. AMOXICILLIN [Suspect]
     Dates: start: 20131007, end: 20131007

REACTIONS (4)
  - Rash generalised [None]
  - Urticaria [None]
  - Pruritus [None]
  - Hypoaesthesia oral [None]
